FAERS Safety Report 8473485-1 (Version None)
Quarter: 2012Q2

REPORT INFORMATION
  Report Type: 
  Country: None (occurrence: None)
  Receive Date: 20120625
  Receipt Date: 20120625
  Transmission Date: 20120825
  Serious: Yes (Hospitalization)
  Sender: FDA-Public Use
  Company Number: None

PATIENT
  Sex: Female

DRUGS (2)
  1. VESICARE [Suspect]
     Indication: URINARY INCONTINENCE
     Dosage: 5 MG  EVERY DAY PO
     Route: 048
     Dates: start: 20120501, end: 20120605
  2. KLOR-CON [Suspect]
     Indication: HYPOKALAEMIA
     Dosage: 10MEQ EVERY DAY PO
     Route: 048
     Dates: start: 20110101, end: 20120622

REACTIONS (2)
  - NEPHROLITHIASIS [None]
  - DRUG INTERACTION [None]
